FAERS Safety Report 10412682 (Version 1)
Quarter: 2014Q3

REPORT INFORMATION
  Report Type: Spontaneous
  Country: BR (occurrence: BR)
  Receive Date: 20140827
  Receipt Date: 20140827
  Transmission Date: 20150326
  Serious: Yes (Hospitalization)
  Sender: FDA-Public Use
  Company Number: BR-009507513-1408BRA014069

PATIENT
  Age: 37 Year
  Sex: Female
  Weight: 55 kg

DRUGS (1)
  1. MERCILON [Suspect]
     Active Substance: DESOGESTREL\ETHINYL ESTRADIOL
     Indication: CONTRACEPTION
     Dosage: 1 DF, QD
     Route: 048
     Dates: start: 1999

REACTIONS (2)
  - Joint surgery [Recovered/Resolved]
  - Tendonitis [Recovered/Resolved]

NARRATIVE: CASE EVENT DATE: 201303
